FAERS Safety Report 8969339 (Version 1)
Quarter: 2012Q4

REPORT INFORMATION
  Report Type: 
  Country: US (occurrence: US)
  Receive Date: 20121218
  Receipt Date: 20121218
  Transmission Date: 20130627
  Serious: No
  Sender: FDA-Public Use
  Company Number: US-BRISTOL-MYERS SQUIBB COMPANY-16282113

PATIENT
  Age: 8 Year
  Sex: Male
  Weight: 36 kg

DRUGS (2)
  1. ABILIFY TABS 5 MG [Suspect]
     Indication: POST-TRAUMATIC STRESS DISORDER
     Dosage: Prescription #: 0217311-11056,1/2tab mor,1tab eve 6 mon ago,5 months after started
  2. ABILIFY TABS 5 MG [Suspect]
     Indication: ANXIETY
     Dosage: Prescription #: 0217311-11056,1/2tab mor,1tab eve 6 mon ago,5 months after started

REACTIONS (1)
  - Urinary incontinence [Unknown]
